FAERS Safety Report 5431992-X (Version None)
Quarter: 2007Q3

REPORT INFORMATION
  Report Type: 
  Country: None (occurrence: None)
  Receive Date: 20070830
  Receipt Date: 20070818
  Transmission Date: 20080115
  Serious: Yes (Other)
  Sender: FDA-Public Use
  Company Number: US-PFIZER INC-2007069778

PATIENT
  Sex: Female
  Weight: 80.909 kg

DRUGS (7)
  1. CHANTIX [Suspect]
     Indication: SMOKING CESSATION THERAPY
  2. AMOXICILLIN [Suspect]
     Indication: LYMPHADENOPATHY
  3. ANTIHYPERTENSIVES [Concomitant]
  4. LEXAPRO [Concomitant]
  5. GABITRIL [Concomitant]
  6. PROPRANOLOL [Concomitant]
  7. CLONIDINE [Concomitant]

REACTIONS (6)
  - DIARRHOEA [None]
  - HEADACHE [None]
  - HYPERTENSION [None]
  - LYMPHADENOPATHY [None]
  - SOMNOLENCE [None]
  - SWELLING FACE [None]
